FAERS Safety Report 23692871 (Version 6)
Quarter: 2025Q4

REPORT INFORMATION
  Report Type: Spontaneous
  Country: US (occurrence: US)
  Receive Date: 20240401
  Receipt Date: 20251009
  Transmission Date: 20260118
  Serious: No
  Sender: SANOFI AVENTIS
  Company Number: US-SA-SAC20240321001273

PATIENT
  Age: 2 Year
  Sex: Female
  Weight: 11.36 kg

DRUGS (2)
  1. DUPIXENT [Suspect]
     Active Substance: DUPILUMAB
     Indication: Dermatitis atopic
     Dosage: 200 MG, Q4W
     Route: 058
     Dates: start: 20240219
  2. DUPIXENT [Suspect]
     Active Substance: DUPILUMAB
     Indication: Eczema
     Dosage: 200 MG; EVERY 8-10 WEEKS
     Route: 058
     Dates: start: 2025

REACTIONS (21)
  - Sleep disorder [Unknown]
  - Irritability [Unknown]
  - Mood altered [Unknown]
  - Disturbance in attention [Unknown]
  - Photophobia [Recovering/Resolving]
  - Sunburn [Recovering/Resolving]
  - Skin atrophy [Not Recovered/Not Resolved]
  - Nightmare [Recovering/Resolving]
  - Insomnia [Recovering/Resolving]
  - Eye infection [Recovering/Resolving]
  - Eczema [Recovering/Resolving]
  - Pruritus [Recovering/Resolving]
  - Skin haemorrhage [Recovering/Resolving]
  - Scratch [Recovering/Resolving]
  - Product dose omission issue [Unknown]
  - Skin exfoliation [Recovering/Resolving]
  - Dry skin [Recovering/Resolving]
  - Skin fissures [Not Recovered/Not Resolved]
  - Dermatitis atopic [Unknown]
  - Therapeutic response shortened [Unknown]
  - Intentional product misuse [Unknown]

NARRATIVE: CASE EVENT DATE: 20240101
